FAERS Safety Report 7872406-X (Version None)
Quarter: 2011Q4

REPORT INFORMATION
  Report Type: 
  Country: None (occurrence: None)
  Receive Date: 20111030
  Receipt Date: 20110318
  Transmission Date: 20120403
  Serious: No
  Sender: FDA-Public Use
  Company Number: US-AMGEN-USASP2011015107

PATIENT
  Sex: Female

DRUGS (1)
  1. ENBREL [Suspect]
     Indication: RHEUMATOID ARTHRITIS
     Dosage: 50 MG, QWK
     Dates: start: 20100515

REACTIONS (12)
  - INJECTION SITE HAEMATOMA [None]
  - NAUSEA [None]
  - INJECTION SITE PRURITUS [None]
  - ARTHRALGIA [None]
  - SKIN HAEMORRHAGE [None]
  - LATEX ALLERGY [None]
  - OEDEMA PERIPHERAL [None]
  - PAIN IN EXTREMITY [None]
  - RHEUMATOID ARTHRITIS [None]
  - DRUG INEFFECTIVE [None]
  - INJECTION SITE PAIN [None]
  - SKIN FISSURES [None]
